FAERS Safety Report 9100284 (Version 1)
Quarter: 2013Q1

REPORT INFORMATION
  Report Type: Spontaneous
  Country: FR (occurrence: FR)
  Receive Date: 20130214
  Receipt Date: 20130214
  Transmission Date: 20140127
  Serious: Yes (Life-Threatening, Other)
  Sender: FDA-Public Use
  Company Number: FR-RANBAXY-2013RR-64992

PATIENT
  Age: 39 Year
  Sex: Female

DRUGS (1)
  1. CEFUROXIME [Suspect]
     Indication: PRODUCT USED FOR UNKNOWN INDICATION
     Dosage: A TABLET OF 500 MG OF CEFUROXIME AXETIL
     Route: 065

REACTIONS (2)
  - Anaphylactic shock [Unknown]
  - Myocardial ischaemia [Unknown]
